FAERS Safety Report 5961828-X (Version None)
Quarter: 2008Q4

REPORT INFORMATION
  Report Type: 
  Country: None (occurrence: None)
  Receive Date: 20081121
  Receipt Date: 20080214
  Transmission Date: 20090506
  Serious: Yes (Disabling, Other)
  Sender: FDA-Public Use
  Company Number: US-BRISTOL-MYERS SQUIBB COMPANY-14013213

PATIENT
  Age: 57 Year
  Sex: Male

DRUGS (2)
  1. AVALIDE [Suspect]
     Indication: HYPERTENSION
     Dosage: DURATION 2+ YEARS. 1 DOSAGE FORM = 300/25 (UNITS NOT SPECIFIED)
     Route: 048
     Dates: start: 20050601
  2. ULTRAM [Concomitant]

REACTIONS (1)
  - LEUKOCYTOCLASTIC VASCULITIS [None]
